FAERS Safety Report 8217347-3 (Version None)
Quarter: 2012Q1

REPORT INFORMATION
  Report Type: 
  Country: None (occurrence: None)
  Receive Date: 20120313
  Receipt Date: 20120229
  Transmission Date: 20120608
  Serious: Yes (Hospitalization)
  Sender: FDA-Public Use
  Company Number: NGX_00934_2012

PATIENT
  Age: 19 Year
  Sex: Female

DRUGS (3)
  1. NOVALGIN /06276704/ (NOVALGIN) (NOT SPECIFIED) [Suspect]
     Indication: NEURALGIA
     Dosage: (DF [4 X 0.5 G] ORAL)
     Route: 048
     Dates: start: 20120101
  2. QUTENZA [Suspect]
     Indication: NEURALGIA
     Dosage: (1 DF, [PATCH INTERCOSTAL REGION] TOPICAL)
     Route: 061
     Dates: start: 20120228, end: 20120228
  3. GABAPENTIN [Suspect]
     Indication: NEURALGIA
     Dosage: (DF [3 X 600 MG] ORAL)
     Route: 048
     Dates: start: 20120101

REACTIONS (4)
  - BONE CYST [None]
  - NEURALGIA [None]
  - APPLICATION SITE PAIN [None]
  - LEUKOPENIA [None]
